FAERS Safety Report 24696471 (Version 1)
Quarter: 2024Q4

REPORT INFORMATION
  Report Type: Spontaneous
  Country: FI (occurrence: FI)
  Receive Date: 20241204
  Receipt Date: 20241204
  Transmission Date: 20250114
  Serious: Yes (Other)
  Sender: SANOFI AVENTIS
  Company Number: FI-SANOFI-02319511

PATIENT
  Age: 78 Year
  Sex: Male
  Weight: 93 kg

DRUGS (4)
  1. TOUJEO [Suspect]
     Active Substance: INSULIN GLARGINE
     Indication: Type 2 diabetes mellitus
     Dosage: 20 UNITS, INCREASE BY 2 UNITS EVERY 3 DAYS UNTIL MORNING BLOOD SUGAR VALUES ARE 6-7
     Route: 065
  2. OZEMPIC [Concomitant]
     Active Substance: SEMAGLUTIDE
     Dosage: QW
  3. ELIQUIS [Concomitant]
     Active Substance: APIXABAN
     Indication: Cerebral infarction
  4. FUROSEMIDE [Concomitant]
     Active Substance: FUROSEMIDE
     Dosage: 6 TABLETS PER DAY

REACTIONS (4)
  - Cataract [Unknown]
  - Visual impairment [Unknown]
  - Blood glucose increased [Unknown]
  - Drug ineffective [Unknown]
